FAERS Safety Report 26090271 (Version 1)
Quarter: 2025Q4

REPORT INFORMATION
  Report Type: Spontaneous
  Country: JP (occurrence: JP)
  Receive Date: 20251126
  Receipt Date: 20251126
  Transmission Date: 20260118
  Serious: Yes (Other)
  Sender: ALEXION PHARMACEUTICALS
  Company Number: JP-AstraZeneca-CH-00996893A

PATIENT
  Age: 68 Year
  Sex: Female

DRUGS (4)
  1. IMFINZI [Suspect]
     Active Substance: DURVALUMAB
     Indication: Endometrial cancer
     Dosage: UNK
     Route: 065
  2. IMFINZI [Suspect]
     Active Substance: DURVALUMAB
     Indication: Uterine cancer
  3. LYNPARZA [Suspect]
     Active Substance: OLAPARIB
     Indication: Endometrial cancer
     Dosage: UNK
     Route: 065
  4. LYNPARZA [Suspect]
     Active Substance: OLAPARIB
     Indication: Uterine cancer

REACTIONS (2)
  - Neuropathy peripheral [Unknown]
  - Malignant neoplasm progression [Unknown]
